FAERS Safety Report 4461004-6 (Version None)
Quarter: 2004Q3

REPORT INFORMATION
  Report Type: 
  Country: None (occurrence: None)
  Receive Date: 20040928
  Receipt Date: 20040625
  Transmission Date: 20050211
  Serious: No
  Sender: FDA-Public Use
  Company Number: US-GLAXOSMITHKLINE-A0516130A

PATIENT
  Age: 44 Year
  Sex: Female

DRUGS (10)
  1. ADVAIR DISKUS 100/50 [Suspect]
     Indication: ASTHMA
     Dosage: 1PUFF TWICE PER DAY
     Route: 055
     Dates: start: 20040513
  2. ACCOLATE [Concomitant]
  3. ALLEGRA [Concomitant]
  4. THEOPHYLLINE [Concomitant]
  5. SYNTHROID [Concomitant]
  6. ALBUTEROL [Concomitant]
  7. DESONIDE [Concomitant]
  8. CLOTRIMAZOLE [Concomitant]
  9. BACTRIM [Concomitant]
  10. NYSTATIN [Concomitant]

REACTIONS (2)
  - BRONCHITIS [None]
  - MEDICATION ERROR [None]
